FAERS Safety Report 25642729 (Version 1)
Quarter: 2025Q3

REPORT INFORMATION
  Report Type: Spontaneous
  Country: US (occurrence: US)
  Receive Date: 20250805
  Receipt Date: 20250805
  Transmission Date: 20251020
  Serious: No
  Sender: COREPHARMA LLC
  Company Number: US-CorePharma LLC-2181837

PATIENT

DRUGS (1)
  1. LISINOPRIL [Suspect]
     Active Substance: LISINOPRIL
     Indication: Hypertension

REACTIONS (2)
  - Paraesthesia [Unknown]
  - Hypotension [Unknown]
